FAERS Safety Report 4905457-5 (Version None)
Quarter: 2006Q1

REPORT INFORMATION
  Report Type: 
  Country: None (occurrence: None)
  Receive Date: 20060208
  Receipt Date: 20060131
  Transmission Date: 20060701
  Serious: Yes (Death, Hospitalization, Other)
  Sender: FDA-Public Use
  Company Number: US-BRISTOL-MYERS SQUIBB COMPANY-13264999

PATIENT
  Age: 65 Year
  Sex: Female

DRUGS (5)
  1. METFORMIN HCL [Suspect]
  2. GLIBENCLAMIDE [Suspect]
  3. CYCLOPHOSPHAMIDE [Concomitant]
  4. DOXORUBICIN HCL [Concomitant]
  5. DOCETAXEL [Concomitant]

REACTIONS (7)
  - ANOREXIA [None]
  - COMA [None]
  - DRY MOUTH [None]
  - FATIGUE [None]
  - HYPOGLYCAEMIA [None]
  - HYPOXIA [None]
  - SOMNOLENCE [None]
